FAERS Safety Report 8511165-4 (Version None)
Quarter: 2012Q3

REPORT INFORMATION
  Report Type: 
  Country: None (occurrence: None)
  Receive Date: 20120716
  Receipt Date: 20120704
  Transmission Date: 20120928
  Serious: Yes (Other)
  Sender: FDA-Public Use
  Company Number: JP-AMGEN-JPNCT2012043387

PATIENT
  Age: 75 Year
  Sex: Female

DRUGS (23)
  1. CARVEDILOL [Suspect]
     Route: 048
     Dates: start: 20111222, end: 20120105
  2. ALOSENN [Concomitant]
     Dosage: UNCERTAINTY
     Route: 048
  3. MUCOTRON [Concomitant]
     Dosage: UNCERTAINTY
     Route: 048
  4. DARBEPOETIN ALFA - KHK [Suspect]
     Indication: NEPHROGENIC ANAEMIA
     Dosage: 60 MUG, Q4WK
     Route: 058
     Dates: start: 20111027, end: 20120215
  5. AVAPRO [Concomitant]
     Dosage: UNCERTAINTY
     Route: 048
  6. MAGMITT [Concomitant]
     Dosage: UNCERTAINTY
     Route: 048
  7. KALIMATE [Concomitant]
     Dosage: UNCERTAINTY
     Route: 048
  8. SENNOSIDE [Concomitant]
     Dosage: UNCERTAINTY
     Route: 048
  9. JUVELA N [Concomitant]
     Dosage: UNCERTAINTY
     Route: 048
  10. KREMEZIN [Concomitant]
     Indication: NEPHROSCLEROSIS
     Dosage: UNCERTAINTY
     Route: 048
  11. MERISLON [Concomitant]
     Dosage: UNCERTAINTY
     Route: 048
  12. NORPACE [Concomitant]
     Dosage: UNCERTAINTY
     Route: 048
  13. PLAVIX [Concomitant]
     Dosage: UNCERTAINTY
     Route: 048
  14. DIGOXIN [Concomitant]
     Dosage: UNK
     Route: 048
  15. POLARAMINE [Concomitant]
     Dosage: UNCERTAINTY
     Route: 048
  16. WARFARIN SODIUM [Concomitant]
     Dosage: UNCERTAINTY
     Route: 048
  17. ALLOPURINOL [Concomitant]
     Dosage: UNCERTAINTY
     Route: 048
  18. D-ALFA [Concomitant]
     Dosage: UNCERTAINTY
     Route: 048
  19. LASIX [Concomitant]
     Indication: NEPHROSCLEROSIS
     Dosage: UNCERTAINTY
     Route: 048
  20. ATELEC [Concomitant]
     Dosage: UNCERTAINTY
     Route: 048
  21. COMELIAN [Concomitant]
     Indication: NEPHROSCLEROSIS
     Dosage: UNCERTAINTY
     Route: 048
  22. RIKAVARIN [Concomitant]
     Dosage: UNCERTAINTY
     Route: 048
  23. PROPAFENONE HYDROCHLORIDE [Concomitant]
     Dosage: UNK
     Route: 048

REACTIONS (1)
  - CARDIAC FAILURE [None]
